FAERS Safety Report 6061465-5 (Version None)
Quarter: 2009Q1

REPORT INFORMATION
  Report Type: 
  Country: None (occurrence: None)
  Receive Date: 20090202
  Receipt Date: 20090121
  Transmission Date: 20090719
  Serious: Yes (Death)
  Sender: FDA-Public Use
  Company Number: US-JNJFOC-20090106602

PATIENT
  Sex: Female
  Weight: 95.26 kg

DRUGS (19)
  1. DURAGESIC-100 [Suspect]
     Indication: DRUG USE FOR UNKNOWN INDICATION
     Route: 065
  2. COCAINE [Suspect]
     Indication: DRUG USE FOR UNKNOWN INDICATION
     Route: 065
  3. NEURONTIN [Concomitant]
     Route: 065
  4. DIAZEPAM [Concomitant]
     Route: 065
  5. PERCOCET [Concomitant]
     Route: 065
  6. RESTORIL [Concomitant]
     Route: 065
  7. PROCHLORPER [Concomitant]
     Route: 065
  8. ZENICAL [Concomitant]
     Route: 065
  9. DIET MATRIX [Concomitant]
     Route: 065
  10. OPIATES [Concomitant]
     Route: 065
  11. PROZAC [Concomitant]
     Route: 065
  12. CLOR-CONIEF [Concomitant]
     Route: 065
  13. BONTRIL PDM [Concomitant]
     Route: 065
  14. CHROMIUM PICOLINATE [Concomitant]
     Route: 065
  15. VITAMIN B-12 [Concomitant]
     Route: 065
  16. DAILY VITAMINS [Concomitant]
     Route: 065
  17. MORPHINE [Concomitant]
     Route: 065
  18. CHLORPHENTERMINE 65MG TAB [Concomitant]
     Route: 065
  19. BENZODIAZEPINES [Concomitant]

REACTIONS (2)
  - ANALGESIC DRUG LEVEL INCREASED [None]
  - DRUG TOXICITY [None]
